FAERS Safety Report 7222417-2 (Version None)
Quarter: 2011Q1

REPORT INFORMATION
  Report Type: 
  Country: None (occurrence: None)
  Receive Date: 20110103
  Receipt Date: 20101221
  Transmission Date: 20110831
  Serious: Yes (Hospitalization, Other)
  Sender: FDA-Public Use
  Company Number: 2010SP066015

PATIENT
  Age: 75 Year
  Sex: Female

DRUGS (14)
  1. LAMOTRIGINE [Concomitant]
  2. BETAPRED [Concomitant]
  3. KAJOS [Concomitant]
  4. SELOKENZOC [Concomitant]
  5. ERGENYL [Concomitant]
  6. NAVOBAN [Concomitant]
  7. RADIATION THERAPY [Concomitant]
  8. ACETAMINOPHEN W/ CODEINE [Concomitant]
  9. FURIX [Concomitant]
  10. TEMODAL [Suspect]
     Indication: BRAIN NEOPLASM MALIGNANT
     Dates: start: 20090101
  11. OMEPRAZOLE [Concomitant]
  12. OXASCAND [Concomitant]
  13. EMOVAT [Concomitant]
  14. MOVICOL [Concomitant]

REACTIONS (3)
  - OEDEMA PERIPHERAL [None]
  - EPILEPSY [None]
  - THROMBOSIS [None]
